FAERS Safety Report 9296133 (Version 1)
Quarter: 2013Q2

REPORT INFORMATION
  Report Type: Spontaneous
  Country: FR (occurrence: FR)
  Receive Date: 20130517
  Receipt Date: 20130517
  Transmission Date: 20140414
  Serious: Yes (Hospitalization)
  Sender: FDA-Public Use
  Company Number: FR-JNJFOC-20130503652

PATIENT
  Age: 16 Year
  Sex: Female

DRUGS (2)
  1. RISPERDAL [Suspect]
     Indication: PRODUCT USED FOR UNKNOWN INDICATION
     Route: 048
     Dates: start: 20121111, end: 20121111
  2. RISPERDAL [Suspect]
     Indication: PRODUCT USED FOR UNKNOWN INDICATION
     Route: 048

REACTIONS (6)
  - Poisoning [Recovered/Resolved]
  - Vision blurred [Recovered/Resolved]
  - Intentional overdose [Unknown]
  - Headache [Not Recovered/Not Resolved]
  - Somnolence [Recovered/Resolved]
  - Palpitations [Unknown]
